FAERS Safety Report 18787492 (Version 1)
Quarter: 2021Q1

REPORT INFORMATION
  Report Type: Spontaneous
  Country: AR (occurrence: AR)
  Receive Date: 20210126
  Receipt Date: 20210126
  Transmission Date: 20210419
  Serious: Yes (Hospitalization, Other)
  Sender: FDA-Public Use
  Company Number: AR-PFIZER INC-2021055600

PATIENT
  Age: 74 Year
  Sex: Male

DRUGS (1)
  1. SUTENT [Suspect]
     Active Substance: SUNITINIB MALATE
     Indication: METASTATIC RENAL CELL CARCINOMA
     Dosage: 50 MG, CYCLIC (DAILY, SCHEME 4/2), EVERY 45 DAYS
     Dates: start: 20200630, end: 202011

REACTIONS (6)
  - Urinary tract infection [Unknown]
  - Infection [Unknown]
  - Infection [Unknown]
  - Bacterial infection [Unknown]
  - Urinary tract infection [Unknown]
  - Device related infection [Unknown]

NARRATIVE: CASE EVENT DATE: 20201120
